FAERS Safety Report 5278990-7 (Version None)
Quarter: 2007Q1

REPORT INFORMATION
  Report Type: 
  Country: None (occurrence: None)
  Receive Date: 20070328
  Receipt Date: 20061013
  Transmission Date: 20070707
  Serious: No
  Sender: FDA-Public Use
  Company Number: US-AMGEN-KDL196819

PATIENT
  Sex: Female

DRUGS (4)
  1. NEULASTA [Suspect]
     Indication: CHEMOTHERAPY
     Route: 065
     Dates: start: 20060101, end: 20060101
  2. CYCLOPHOSPHAMIDE [Concomitant]
     Route: 065
  3. TAXOTERE [Concomitant]
  4. DOXORUBICIN HYDROCHLORIDE [Concomitant]
     Route: 065

REACTIONS (4)
  - DYSPNOEA [None]
  - HYPERSENSITIVITY [None]
  - RASH GENERALISED [None]
  - WHEEZING [None]
